FAERS Safety Report 10861336 (Version 1)
Quarter: 2015Q1

REPORT INFORMATION
  Report Type: Spontaneous
  Country: US (occurrence: None)
  Receive Date: 20150218
  Receipt Date: 20150218
  Transmission Date: 20150721
  Serious: Yes (Hospitalization)
  Sender: FDA-Public Use
  Company Number: None

PATIENT
  Age: 50 Year
  Sex: Male
  Weight: 58.6 kg

DRUGS (1)
  1. DELFLEX WITH DEXTROSE 1.5% LOW MAGNESIUM LOW CALCIUM [Suspect]
     Active Substance: CALCIUM CHLORIDE\DEXTROSE MONOHYDRATE\MAGNESIUM CHLORIDE\SODIUM CHLORIDE\SODIUM LACTATE
     Indication: CHRONIC KIDNEY DISEASE
     Dosage: REF # 201429514
     Route: 032
     Dates: start: 20141108, end: 20141109

REACTIONS (8)
  - Liquid product physical issue [None]
  - Diarrhoea [None]
  - Peritoneal cloudy effluent [None]
  - Nausea [None]
  - Vomiting [None]
  - Peritonitis [None]
  - Abdominal pain [None]
  - Poor quality drug administered [None]

NARRATIVE: CASE EVENT DATE: 20141111
